FAERS Safety Report 7761067-6 (Version None)
Quarter: 2011Q3

REPORT INFORMATION
  Report Type: 
  Country: None (occurrence: None)
  Receive Date: 20110920
  Receipt Date: 20100810
  Transmission Date: 20111222
  Serious: No
  Sender: FDA-Public Use
  Company Number: US-BAYER-201032912NA

PATIENT
  Sex: Female

DRUGS (2)
  1. SYNTHROID [Concomitant]
  2. MIRENA [Suspect]
     Dosage: UNK
     Dates: start: 20080101

REACTIONS (3)
  - MENORRHAGIA [None]
  - DYSMENORRHOEA [None]
  - HYPOMENORRHOEA [None]
